FAERS Safety Report 6151826-8 (Version None)
Quarter: 2009Q2

REPORT INFORMATION
  Report Type: 
  Country: None (occurrence: None)
  Receive Date: 20090408
  Receipt Date: 20090402
  Transmission Date: 20091009
  Serious: Yes (Other)
  Sender: FDA-Public Use
  Company Number: 2009SP006205

PATIENT
  Age: 25 Year
  Sex: Male

DRUGS (3)
  1. PEG-INTRON [Suspect]
     Indication: HEPATITIS C
     Dosage: 100 MCG;QW;SC ; 100 MCG;QW;SC
     Route: 058
     Dates: start: 20081101
  2. PEG-INTRON [Suspect]
     Indication: HEPATITIS C
     Dosage: 100 MCG;QW;SC ; 100 MCG;QW;SC
     Route: 058
     Dates: start: 20090226
  3. REBETOL [Suspect]
     Indication: HEPATITIS C
     Dosage: 200 MG;BID;PO
     Route: 048
     Dates: start: 20081101

REACTIONS (3)
  - ASPARTATE AMINOTRANSFERASE INCREASED [None]
  - FATIGUE [None]
  - WHITE BLOOD CELL COUNT DECREASED [None]
